FAERS Safety Report 10048554 (Version 2)
Quarter: 2014Q4

REPORT INFORMATION
  Report Type: Spontaneous
  Country: US (occurrence: US)
  Receive Date: 20140331
  Receipt Date: 20141020
  Transmission Date: 20150528
  Serious: Yes (Death, Hospitalization, Other)
  Sender: FDA-Public Use
  Company Number: US-MERCK-1403USA013491

PATIENT
  Sex: Male
  Weight: 69.84 kg

DRUGS (2)
  1. JANUVIA [Suspect]
     Active Substance: SITAGLIPTIN PHOSPHATE
     Indication: TYPE 2 DIABETES MELLITUS
     Dosage: 50 MG, QD
     Route: 048
     Dates: start: 20071224, end: 20130318
  2. JANUVIA [Suspect]
     Active Substance: SITAGLIPTIN PHOSPHATE
     Dosage: 100 MG, QD
     Route: 048
     Dates: start: 20071224, end: 20130319

REACTIONS (32)
  - Metastases to peritoneum [Unknown]
  - Gastrooesophageal reflux disease [Unknown]
  - Renal stone removal [Unknown]
  - Hydronephrosis [Unknown]
  - Adrenal disorder [Unknown]
  - Hypercholesterolaemia [Unknown]
  - Nephrolithiasis [Unknown]
  - Stress [Unknown]
  - Prostatomegaly [Unknown]
  - Depression [Unknown]
  - Nephrolithiasis [Unknown]
  - Back pain [Unknown]
  - Renal failure [Unknown]
  - Fear of death [Unknown]
  - Vision blurred [Unknown]
  - Intervertebral disc disorder [Unknown]
  - Diverticulum [Unknown]
  - Anaemia [Unknown]
  - Bile duct adenocarcinoma [Unknown]
  - Anxiety [Unknown]
  - Ulcer [Unknown]
  - Nephrolithiasis [Unknown]
  - Osteoporosis [Unknown]
  - Nephrolithiasis [Unknown]
  - Pancreatic carcinoma metastatic [Unknown]
  - Pancreatitis [Unknown]
  - Hypoglycaemia [Unknown]
  - Gastric disorder [Unknown]
  - Pancreatic cyst [Unknown]
  - Anaemia [Unknown]
  - Death [Fatal]
  - Hepatic lesion [Unknown]

NARRATIVE: CASE EVENT DATE: 20080305
